FAERS Safety Report 25935583 (Version 3)
Quarter: 2025Q4

REPORT INFORMATION
  Report Type: Report from Study
  Country: US (occurrence: US)
  Receive Date: 20251017
  Receipt Date: 20251216
  Transmission Date: 20260118
  Serious: Yes (Disabling)
  Sender: EISAI
  Company Number: US-Eisai-EC-2025-196740

PATIENT
  Age: 70 Year
  Sex: Female
  Weight: 90 kg

DRUGS (12)
  1. LENVIMA [Suspect]
     Active Substance: LENVATINIB
     Indication: Uterine cancer
     Route: 048
     Dates: start: 20250912, end: 20250916
  2. KEYTRUDA [Concomitant]
     Active Substance: PEMBROLIZUMAB
  3. ASCORBIC ACID [Concomitant]
     Active Substance: ASCORBIC ACID
  4. CALCIUM CARBONATE [Concomitant]
     Active Substance: CALCIUM CARBONATE
  5. CHERRY [Concomitant]
     Active Substance: CHERRY
  6. FISH OIL [Concomitant]
     Active Substance: FISH OIL
  7. GARLIC [Concomitant]
     Active Substance: GARLIC
  8. METOPROLOL TARTRATE [Concomitant]
     Active Substance: METOPROLOL TARTRATE
  9. VITAMINS [Concomitant]
     Active Substance: VITAMINS
  10. PROCHLORPERAZINE MALEATE [Concomitant]
     Active Substance: PROCHLORPERAZINE MALEATE
  11. ALLOPURINOL [Concomitant]
     Active Substance: ALLOPURINOL
  12. LEVOTHYROXINE [Concomitant]
     Active Substance: LEVOTHYROXINE

REACTIONS (7)
  - Vomiting [Recovered/Resolved]
  - Nausea [Recovered/Resolved]
  - Headache [Recovering/Resolving]
  - Brain fog [Unknown]
  - Dehydration [Not Recovered/Not Resolved]
  - Abdominal discomfort [Recovering/Resolving]
  - Fatigue [Recovering/Resolving]

NARRATIVE: CASE EVENT DATE: 20250901
